FAERS Safety Report 9254299 (Version 1)
Quarter: 2013Q1

REPORT INFORMATION
  Report Type: Spontaneous
  Country: US (occurrence: None)
  Receive Date: 20121211
  Receipt Date: 20121211
  Transmission Date: 20140127
  Serious: Yes (Other)
  Sender: FDA-Public Use
  Company Number: 1209USA003453

PATIENT
  Age: 45 Year
  Sex: Male

DRUGS (12)
  1. ISENTRESS [Suspect]
     Route: 048
  2. MYCOBUTIN [Suspect]
  3. PYRAMIDE (PYRAZINAMIDE) [Concomitant]
  4. PYDOXAL (PYRIDOXAL PHOSPHATE) [Concomitant]
  5. ZIDOVUDINE (ZIDOVUDINE) [Concomitant]
  6. FOSAMPRENAVIR CALCIUM (FOSAMPRENAVIR CALCIUM) [Concomitant]
  7. BAKTAR (SULFAMETHOXAZOLE, TRIMETHOPRIM) [Concomitant]
  8. LENDORMIN (BROTIZOLAM) [Concomitant]
  9. TOLEDOMIN (MILNACIPRAN HYDROCHLORIDE) [Concomitant]
  10. EBUTOOL (ETHAMBUTOL HYDROCHLORIDE) [Concomitant]
  11. ISCOTIN (ISONIAZID) [Concomitant]
  12. TRUVADA (EMTRICITABINE, TENOFIR DISOPROXIL FUMARATE) [Concomitant]

REACTIONS (1)
  - Drug resistance [None]
